FAERS Safety Report 5160060-X (Version None)
Quarter: 2006Q4

REPORT INFORMATION
  Report Type: 
  Country: None (occurrence: None)
  Receive Date: 20061129
  Receipt Date: 20060828
  Transmission Date: 20070319
  Serious: No
  Sender: FDA-Public Use
  Company Number: US-GLAXOSMITHKLINE-A0618397A

PATIENT
  Sex: Female

DRUGS (3)
  1. BUPROPION HYDROCHLORIDE [Suspect]
     Indication: DRUG USE FOR UNKNOWN INDICATION
     Dosage: 200MG TWICE PER DAY
     Route: 048
  2. BUPROPION HYDROCHLORIDE [Suspect]
     Dosage: 200MG TWICE PER DAY
     Route: 048
  3. BUPROPION HYDROCHLORIDE [Suspect]
     Dosage: 200MG TWICE PER DAY

REACTIONS (1)
  - GASTROINTESTINAL DISORDER [None]
